FAERS Safety Report 8759944 (Version 1)
Quarter: 2012Q4

REPORT INFORMATION
  Report Type: 
  Country: US (occurrence: US)
  Receive Date: 20120829
  Receipt Date: 20120829
  Transmission Date: 20130627
  Serious: Yes (Other)
  Sender: FDA-Public Use
  Company Number: US-GLAXOSMITHKLINE-A0990598A

PATIENT
  Age: 75 Year
  Sex: Female

DRUGS (10)
  1. ADVAIR [Suspect]
     Indication: CHRONIC OBSTRUCTIVE PULMONARY DISEASE
     Dosage: 1PUFF Twice per day
     Route: 055
     Dates: start: 2005, end: 20120821
  2. ATROVENT [Concomitant]
  3. ALBUTEROL [Concomitant]
  4. PRILOSEC [Concomitant]
  5. SINGULAIR [Concomitant]
  6. XYZAL [Concomitant]
  7. UNSPECIFIED MEDICATION [Concomitant]
  8. FELODIPINE [Concomitant]
  9. ASPIRIN [Concomitant]
  10. KLONOPIN [Concomitant]

REACTIONS (2)
  - Cataract [Recovered/Resolved]
  - Genital pain [Recovered/Resolved]
